FAERS Safety Report 20346768 (Version 16)
Quarter: 2022Q4

REPORT INFORMATION
  Report Type: Spontaneous
  Country: PL (occurrence: PL)
  Receive Date: 20220118
  Receipt Date: 20221229
  Transmission Date: 20230112
  Serious: Yes (Life-Threatening, Hospitalization, Other)
  Sender: FDA-Public Use
  Company Number: PL-NALPROPION PHARMACEUTICALS INC.-2021-014734

PATIENT
  Age: 29 Year
  Sex: Female

DRUGS (23)
  1. ONDANSETRON [Interacting]
     Active Substance: ONDANSETRON
     Indication: Prophylaxis of nausea and vomiting
     Dosage: UNK
     Route: 065
  2. ONDANSETRON [Interacting]
     Active Substance: ONDANSETRON
     Indication: Nausea
     Dosage: 16 MILLIGRAM, QD (16 MG, 1D)
     Route: 048
  3. ONDANSETRON [Interacting]
     Active Substance: ONDANSETRON
     Indication: Obesity
  4. ONDANSETRON [Interacting]
     Active Substance: ONDANSETRON
     Indication: Prophylaxis of nausea and vomiting
     Dosage: 16 MILLIGRAM, QD
     Route: 065
  5. ONDANSETRON [Interacting]
     Active Substance: ONDANSETRON
     Indication: Nausea
  6. SEMAGLUTIDE [Interacting]
     Active Substance: SEMAGLUTIDE
     Indication: Obesity
     Dosage: 0.5 MILLIGRAM, QW
     Route: 058
  7. SEMAGLUTIDE [Interacting]
     Active Substance: SEMAGLUTIDE
     Indication: Prophylaxis
     Dosage: 0.5 MILLIGRAM, QW
     Route: 058
  8. BUPROPION [Interacting]
     Active Substance: BUPROPION
     Indication: Obesity
     Dosage: 300 MILLIGRAM, QD
     Route: 048
  9. BUPROPION [Interacting]
     Active Substance: BUPROPION
     Indication: Prophylaxis
     Dosage: 150 MILLIGRAM, QD (THROUGH FIRST 6 DAYS)
     Route: 048
  10. BUPROPION [Interacting]
     Active Substance: BUPROPION
     Dosage: 180 MG, 90MG TABLET (2 TABLETS AFTER LUNCH)
     Route: 048
  11. BUPROPION [Interacting]
     Active Substance: BUPROPION
     Dosage: (8/90 MILLIGRAM, QD)
     Route: 048
  12. VORTIOXETINE [Interacting]
     Active Substance: VORTIOXETINE
     Indication: Obesity
     Dosage: 10 MG, QD (TAKEN AFTER LAST MEAL)
     Route: 048
  13. VORTIOXETINE [Interacting]
     Active Substance: VORTIOXETINE
     Indication: Prophylaxis
  14. BUPROPION HYDROCHLORIDE\NALTREXONE HYDROCHLORIDE [Interacting]
     Active Substance: BUPROPION HYDROCHLORIDE\NALTREXONE HYDROCHLORIDE
     Indication: Obesity
     Dosage: 2 TAB,8 MG OF NALTREXONE, 90 MG OF BUPROPION/QD
     Route: 048
  15. BUPROPION HYDROCHLORIDE\NALTREXONE HYDROCHLORIDE [Interacting]
     Active Substance: BUPROPION HYDROCHLORIDE\NALTREXONE HYDROCHLORIDE
     Dosage: 1 DOSAGE FORM, QD (98/90 MILLIGRAM, QD )
     Route: 048
  16. BUPROPION HYDROCHLORIDE\NALTREXONE HYDROCHLORIDE [Interacting]
     Active Substance: BUPROPION HYDROCHLORIDE\NALTREXONE HYDROCHLORIDE
     Dosage: 1 DF (8/90 MILLIGRAM, QD)
     Route: 048
  17. BUPROPION HYDROCHLORIDE\NALTREXONE HYDROCHLORIDE [Interacting]
     Active Substance: BUPROPION HYDROCHLORIDE\NALTREXONE HYDROCHLORIDE
     Dosage: 1, UNK, QD (8/90 MILLIGRAM, QD )
     Route: 048
  18. OZEMPIC [Interacting]
     Active Substance: SEMAGLUTIDE
     Indication: Obesity
     Dosage: UNK
     Route: 065
  19. OZEMPIC [Interacting]
     Active Substance: SEMAGLUTIDE
     Dosage: 0.5 MILLIGRAM, QW (0.5 MG, WE (ONCE A WEEK))
     Route: 058
  20. NALTREXONE [Interacting]
     Active Substance: NALTREXONE
     Indication: Prophylaxis
     Dosage: 16 MG, 8MG TABLET (2 TABLETS AFTER LUNCH)
     Route: 048
  21. NALTREXONE [Interacting]
     Active Substance: NALTREXONE
     Indication: Obesity
  22. NALTREXONE HYDROCHLORIDE [Interacting]
     Active Substance: NALTREXONE HYDROCHLORIDE
     Indication: Obesity
     Dosage: 8 MILLIGRAM, QD
     Route: 065
  23. BUPROPION HYDROCHLORIDE\NALTREXONE HYDROCHLORIDE [Suspect]
     Active Substance: BUPROPION HYDROCHLORIDE\NALTREXONE HYDROCHLORIDE
     Indication: Obesity
     Dosage: 1, UNK, QD (8/90 MILLIGRAM, QD)
     Route: 048

REACTIONS (23)
  - Myopathy [Recovered/Resolved]
  - Urine flow decreased [Recovered/Resolved]
  - Rhabdomyolysis [Recovering/Resolving]
  - Myoglobinuria [Recovered/Resolved]
  - Renal failure [Recovered/Resolved]
  - Serotonin syndrome [Recovered/Resolved]
  - Labelled drug-drug interaction medication error [Unknown]
  - Product use in unapproved indication [Unknown]
  - Myalgia [Recovered/Resolved]
  - Urinary retention [Recovering/Resolving]
  - Chills [Recovered/Resolved]
  - Muscle spasms [Recovered/Resolved]
  - Body temperature increased [Recovered/Resolved]
  - Hyperhidrosis [Recovered/Resolved]
  - Headache [Recovered/Resolved]
  - Micturition frequency decreased [Recovering/Resolving]
  - Drug interaction [Recovering/Resolving]
  - Urine output decreased [Recovered/Resolved]
  - Drug titration error [Unknown]
  - Contraindicated product administered [Unknown]
  - Contraindicated product prescribed [Unknown]
  - Product prescribing error [Unknown]
  - Off label use [Unknown]
